FAERS Safety Report 22881121 (Version 3)
Quarter: 2023Q4

REPORT INFORMATION
  Report Type: Report from Study
  Country: US (occurrence: US)
  Receive Date: 20230830
  Receipt Date: 20231129
  Transmission Date: 20240110
  Serious: Yes (Other)
  Sender: FDA-Public Use
  Company Number: US-ABBVIE-5384106

PATIENT
  Sex: Male

DRUGS (1)
  1. RINVOQ [Suspect]
     Active Substance: UPADACITINIB
     Indication: Dermatitis atopic
     Route: 048
     Dates: start: 20230421

REACTIONS (8)
  - Lower limb fracture [Unknown]
  - Eczema [Recovered/Resolved]
  - Insomnia [Recovered/Resolved]
  - Cerebral haemorrhage [Unknown]
  - Intentional product misuse [Unknown]
  - Blindness unilateral [Unknown]
  - Retinal tear [Unknown]
  - Retinal detachment [Unknown]

NARRATIVE: CASE EVENT DATE: 20230101
